FAERS Safety Report 10565029 (Version 1)
Quarter: 2014Q4

REPORT INFORMATION
  Report Type: Spontaneous
  Country: CA (occurrence: None)
  Receive Date: 20141104
  Receipt Date: 20141104
  Transmission Date: 20150529
  Serious: Yes (Death, Hospitalization)
  Sender: FDA-Public Use
  Company Number: None

PATIENT
  Age: 73 Year
  Sex: Male
  Weight: 56.4 kg

DRUGS (1)
  1. AZACITIDINE. [Suspect]
     Active Substance: AZACITIDINE
     Dates: end: 20141016

REACTIONS (3)
  - Haemoptysis [None]
  - Rectal haemorrhage [None]
  - Cough [None]

NARRATIVE: CASE EVENT DATE: 20141026
